FAERS Safety Report 16028385 (Version 1)
Quarter: 2019Q1

REPORT INFORMATION
  Report Type: Spontaneous
  Country: US (occurrence: US)
  Receive Date: 20190304
  Receipt Date: 20190304
  Transmission Date: 20190418
  Serious: No
  Sender: FDA-Public Use
  Company Number: US-BAUSCH-BL-2019-005336

PATIENT
  Sex: Male
  Weight: 87.17 kg

DRUGS (2)
  1. LUMIFY [Suspect]
     Active Substance: BRIMONIDINE TARTRATE
     Route: 047
  2. LUMIFY [Suspect]
     Active Substance: BRIMONIDINE TARTRATE
     Indication: OCULAR HYPERAEMIA
     Route: 047

REACTIONS (7)
  - Ocular hyperaemia [Not Recovered/Not Resolved]
  - Dry eye [Recovered/Resolved]
  - Drug effect incomplete [Unknown]
  - Halo vision [Not Recovered/Not Resolved]
  - Hypersensitivity [Unknown]
  - Rebound effect [Not Recovered/Not Resolved]
  - Eye pruritus [Not Recovered/Not Resolved]
